FAERS Safety Report 8669805 (Version 2)
Quarter: 2012Q4

REPORT INFORMATION
  Report Type: Report from Study
  Country: DE (occurrence: DE)
  Receive Date: 20120718
  Receipt Date: 20120906
  Transmission Date: 20130627
  Serious: Yes (Hospitalization)
  Sender: FDA-Public Use
  Company Number: DE-JNJFOC-20120706777

PATIENT
  Age: 55 Year
  Sex: Female
  Weight: 69 kg

DRUGS (6)
  1. SIMPONI [Suspect]
     Indication: RHEUMATOID ARTHRITIS
     Route: 058
     Dates: start: 20110512, end: 20120307
  2. LODOTRA [Concomitant]
     Dates: start: 20050527
  3. ARCOXIA [Concomitant]
     Dates: start: 20041001
  4. OMEPRAZOLE [Concomitant]
     Dates: start: 20000107
  5. CALCIUM/D3 [Concomitant]
  6. AMITRIPTYLIN [Concomitant]
     Dates: start: 20090422

REACTIONS (1)
  - Atypical pneumonia [Recovered/Resolved]
